FAERS Safety Report 4282723-0 (Version None)
Quarter: 2004Q1

REPORT INFORMATION
  Report Type: 
  Country: None (occurrence: None)
  Receive Date: 20040130
  Receipt Date: 20030407
  Transmission Date: 20041129
  Serious: No
  Sender: FDA-Public Use
  Company Number: US-BRISTOL-MYERS SQUIBB COMPANY-12233342

PATIENT
  Age: 59 Year
  Sex: Female
  Weight: 69 kg

DRUGS (10)
  1. SERZONE [Suspect]
     Indication: DEPRESSION
     Dosage: TAKING ^ABOUT 2 YEARS AGO^
     Route: 048
  2. CARDENE SR [Concomitant]
  3. ASPIRIN [Concomitant]
  4. ATIVAN [Concomitant]
  5. HALCION [Concomitant]
  6. ESTRACE [Concomitant]
     Route: 048
  7. LANOXIN [Concomitant]
  8. LIPITOR [Concomitant]
  9. PLAVIX [Concomitant]
  10. DIPYRIDAMOLE [Concomitant]

REACTIONS (2)
  - DRUG INEFFECTIVE [None]
  - HEADACHE [None]
